FAERS Safety Report 8563485-5 (Version None)
Quarter: 2012Q3

REPORT INFORMATION
  Report Type: 
  Country: None (occurrence: None)
  Receive Date: 20120802
  Receipt Date: 20120723
  Transmission Date: 20120928
  Serious: Yes (Other)
  Sender: FDA-Public Use
  Company Number: US-009507513-1207USA009985

PATIENT

DRUGS (6)
  1. NORVASC [Suspect]
     Route: 048
  2. ZOCOR [Suspect]
     Route: 048
  3. MEDROL [Suspect]
  4. AMLODIPINE BESYLATE [Suspect]
     Route: 048
  5. LEVAQUIN [Suspect]
  6. XANAX [Concomitant]

REACTIONS (12)
  - PALPITATIONS [None]
  - CALCINOSIS [None]
  - DRUG DISPENSING ERROR [None]
  - DRUG HYPERSENSITIVITY [None]
  - URTICARIA [None]
  - FEELING ABNORMAL [None]
  - HYPERTENSION [None]
  - ARTERIAL DISORDER [None]
  - TRANSIENT ISCHAEMIC ATTACK [None]
  - DIZZINESS [None]
  - VITAMIN D DECREASED [None]
  - JOINT SWELLING [None]
